FAERS Safety Report 15503627 (Version 1)
Quarter: 2018Q4

REPORT INFORMATION
  Report Type: Spontaneous
  Country: US (occurrence: US)
  Receive Date: 20181009
  Receipt Date: 20181009
  Transmission Date: 20190205
  Serious: Yes (Other)
  Sender: FDA-Public Use
  Company Number: None

PATIENT
  Age: 15 Year
  Sex: Male
  Weight: 96.75 kg

DRUGS (4)
  1. MONTELUKAST SOD 10 MG [Concomitant]
     Active Substance: MONTELUKAST SODIUM
  2. ALBUTEROL. [Concomitant]
     Active Substance: ALBUTEROL
  3. FLONASE [Concomitant]
     Active Substance: FLUTICASONE PROPIONATE
  4. LISINOPRIL. [Suspect]
     Active Substance: LISINOPRIL
     Indication: MULTIPLE ALLERGIES
     Dosage: ?          QUANTITY:13 TABLET(S);?
     Route: 048
     Dates: start: 20180803, end: 20180907

REACTIONS (4)
  - Headache [None]
  - Hypotension [None]
  - Chest pain [None]
  - Loss of consciousness [None]

NARRATIVE: CASE EVENT DATE: 20180830
